FAERS Safety Report 7320431-X (Version None)
Quarter: 2011Q1

REPORT INFORMATION
  Report Type: 
  Country: None (occurrence: None)
  Receive Date: 20110228
  Receipt Date: 20110216
  Transmission Date: 20110831
  Serious: Yes (Hospitalization)
  Sender: FDA-Public Use
  Company Number: A0915093A

PATIENT
  Age: 51 Year
  Sex: Female
  Weight: 59 kg

DRUGS (7)
  1. OXYCODONE [Concomitant]
     Route: 048
  2. PROVENTIL-HFA [Concomitant]
     Dosage: 90MCG TWICE PER DAY
     Route: 055
  3. COMPAZINE [Concomitant]
     Dosage: 10MG AS REQUIRED
     Route: 048
  4. PAZOPANIB [Suspect]
     Dosage: 800MG PER DAY
     Route: 048
     Dates: start: 20110124
  5. CELEXA [Concomitant]
     Dosage: 40MG AT NIGHT
     Route: 048
  6. COMBIVENT [Concomitant]
     Dosage: 2PUFF TWICE PER DAY
     Route: 055
  7. ZOFRAN [Concomitant]
     Dosage: 8MG FOUR TIMES PER DAY
     Route: 048

REACTIONS (3)
  - DYSPNOEA [None]
  - MENTAL STATUS CHANGES [None]
  - PRODUCTIVE COUGH [None]
